FAERS Safety Report 24106209 (Version 2)
Quarter: 2024Q3

REPORT INFORMATION
  Report Type: Spontaneous
  Country: SE (occurrence: SE)
  Receive Date: 20240717
  Receipt Date: 20240809
  Transmission Date: 20241016
  Serious: Yes (Death, Hospitalization)
  Sender: TEVA
  Company Number: SE-TEVA-VS-3212909

PATIENT
  Age: 73 Year
  Sex: Female

DRUGS (18)
  1. VENLAFAXINE [Suspect]
     Active Substance: VENLAFAXINE HYDROCHLORIDE
     Indication: Depression
     Route: 065
  2. SODIUM BICARBONATE [Concomitant]
     Active Substance: SODIUM BICARBONATE
     Indication: Hyperkalaemia
     Route: 065
  3. ESCITALOPRAM [Suspect]
     Active Substance: ESCITALOPRAM OXALATE
     Indication: Depression
     Route: 065
  4. MIDAZOLAM [Suspect]
     Active Substance: MIDAZOLAM
     Indication: Hypertension
     Route: 042
  5. CLONIDINE [Suspect]
     Active Substance: CLONIDINE
     Indication: Hypertension
     Route: 042
  6. FUROSEMIDE [Suspect]
     Active Substance: FUROSEMIDE
     Indication: Hypertension
     Route: 042
  7. ASPIRIN [Concomitant]
     Active Substance: ASPIRIN
     Indication: Antiplatelet therapy
     Route: 065
  8. MINOXIDIL [Suspect]
     Active Substance: MINOXIDIL
     Indication: Hypertension
     Route: 050
  9. INSULIN NOS [Concomitant]
     Active Substance: INSULIN NOS
     Indication: Hyperkalaemia
     Route: 065
  10. METOPROLOL [Suspect]
     Active Substance: METOPROLOL
     Indication: Hypertension
     Route: 042
  11. CALCIUM [Concomitant]
     Active Substance: CALCIUM
     Indication: Hyperkalaemia
     Route: 065
  12. MORPHINE [Suspect]
     Active Substance: MORPHINE
     Indication: Hypertension
     Route: 042
  13. ERYTHROMYCIN [Suspect]
     Active Substance: ERYTHROMYCIN
     Indication: Lower respiratory tract infection
     Route: 065
  14. AMLODIPINE [Suspect]
     Active Substance: AMLODIPINE BESYLATE
     Indication: Hypertension
     Route: 050
  15. CYPROHEPTADINE [Suspect]
     Active Substance: CYPROHEPTADINE
     Indication: Hypertension
     Dosage: 2MG EVERY 120MIN FOR 8H
     Route: 050
  16. CYPROHEPTADINE [Suspect]
     Active Substance: CYPROHEPTADINE
     Indication: Hypertension
     Route: 050
  17. LABETALOL [Suspect]
     Active Substance: LABETALOL\LABETALOL HYDROCHLORIDE
     Indication: Hypertension
     Dosage: BOLUS
     Route: 040
  18. DEXTROSE [Concomitant]
     Active Substance: DEXTROSE\DEXTROSE MONOHYDRATE
     Indication: Hyperkalaemia
     Route: 065

REACTIONS (9)
  - Serotonin syndrome [Fatal]
  - Hypertension [Fatal]
  - Drug ineffective [Fatal]
  - Withdrawal hypertension [Fatal]
  - Drug interaction [Fatal]
  - Myocardial infarction [Fatal]
  - Cardiac arrest [Fatal]
  - Ventricular fibrillation [Fatal]
  - Myeloma cast nephropathy [Fatal]
